FAERS Safety Report 10860965 (Version 1)
Quarter: 2015Q1

REPORT INFORMATION
  Report Type: Spontaneous
  Country: US (occurrence: None)
  Receive Date: 20150218
  Receipt Date: 20150218
  Transmission Date: 20150721
  Serious: Yes (Other)
  Sender: FDA-Public Use
  Company Number: None

PATIENT

DRUGS (5)
  1. INFUVITE [Concomitant]
     Active Substance: VITAMINS
  2. 0.9% SODIUM CHLORIDE [Suspect]
     Active Substance: SODIUM CHLORIDE
     Dates: start: 20150214, end: 20150214
  3. THIAMINE [Concomitant]
     Active Substance: THIAMINE
  4. FOLIC ACID. [Concomitant]
     Active Substance: FOLIC ACID
  5. MAGNESIUM SULFATE 20ML HOSPIRA [Suspect]
     Active Substance: MAGNESIUM SULFATE

REACTIONS (2)
  - Product reconstitution issue [None]
  - Liquid product physical issue [None]

NARRATIVE: CASE EVENT DATE: 20150214
